FAERS Safety Report 7725347-2 (Version None)
Quarter: 2011Q3

REPORT INFORMATION
  Report Type: 
  Country: None (occurrence: None)
  Receive Date: 20110830
  Receipt Date: 20110817
  Transmission Date: 20111222
  Serious: Yes (Hospitalization)
  Sender: FDA-Public Use
  Company Number: 2011-2926

PATIENT
  Age: 74 Year
  Sex: Female

DRUGS (1)
  1. APO-GO AMPOULES (APO-GO) (APOMORPHINE HYDROCHLORIDE) (APOMORPHINE HYDR [Suspect]
     Indication: PARKINSON'S DISEASE
     Dosage: 20.8 ML (1.3 ML FROM 7AM TO 11PM, SUBCUTANEOUS
     Route: 058
     Dates: start: 20090403, end: 20110726

REACTIONS (23)
  - NAUSEA [None]
  - BLOOD PRESSURE FLUCTUATION [None]
  - URINE ODOUR ABNORMAL [None]
  - MUSCLE SPASMS [None]
  - CHILLS [None]
  - DEVICE COLOUR ISSUE [None]
  - ARTHRITIS [None]
  - FREEZING PHENOMENON [None]
  - SLEEP ATTACKS [None]
  - OEDEMA [None]
  - BALANCE DISORDER [None]
  - ABDOMINAL PAIN [None]
  - HEADACHE [None]
  - SOMNOLENCE [None]
  - FATIGUE [None]
  - NOCTURIA [None]
  - HYPOTHERMIA [None]
  - VOMITING [None]
  - CARDIAC DISORDER [None]
  - TACHYARRHYTHMIA [None]
  - NIGHT SWEATS [None]
  - SLEEP DISORDER [None]
  - PAIN IN EXTREMITY [None]
